FAERS Safety Report 14811054 (Version 2)
Quarter: 2018Q3

REPORT INFORMATION
  Report Type: Report from Study
  Country: US (occurrence: US)
  Receive Date: 20180425
  Receipt Date: 20180719
  Transmission Date: 20181010
  Serious: No
  Sender: FDA-Public Use
  Company Number: US-AMGEN-USASL2018036846

PATIENT
  Age: 70 Year
  Sex: Male

DRUGS (2)
  1. REPATHA [Suspect]
     Active Substance: EVOLOCUMAB
     Indication: BLOOD CHOLESTEROL INCREASED
     Dosage: 140 MG, Q2WK
     Route: 065
  2. PRAVASTATIN. [Concomitant]
     Active Substance: PRAVASTATIN

REACTIONS (5)
  - Blood pressure abnormal [Recovering/Resolving]
  - Glomerular filtration rate decreased [Recovering/Resolving]
  - Peripheral swelling [Recovering/Resolving]
  - Arthralgia [Not Recovered/Not Resolved]
  - Joint swelling [Recovering/Resolving]

NARRATIVE: CASE EVENT DATE: 2018
